FAERS Safety Report 12173562 (Version 1)
Quarter: 2016Q1

REPORT INFORMATION
  Report Type: Spontaneous
  Country: US (occurrence: None)
  Receive Date: 20160311
  Receipt Date: 20160311
  Transmission Date: 20160526
  Serious: Yes (Death)
  Sender: FDA-Public Use
  Company Number: None

PATIENT
  Age: 62 Year
  Sex: Female
  Weight: 45.81 kg

DRUGS (2)
  1. HYDROMORPHONE 4 MILLIGRAMS [Suspect]
     Active Substance: HYDROMORPHONE
     Indication: CANCER PAIN
     Dosage: 1 TAB/EVERY 4 HRS PRN PAIN EVERY 4 HOURS ORAL
     Route: 048
     Dates: start: 20130503, end: 20160307
  2. FENTANYL TRANSDERMAL SYSTEM [Suspect]
     Active Substance: FENTANYL
     Indication: CANCER PAIN
     Dosage: 50MCG/HOUR EVERY 72 HOURS TRANSDERMAL
     Route: 062
     Dates: start: 20151111, end: 20160307

REACTIONS (1)
  - Death [None]

NARRATIVE: CASE EVENT DATE: 20160307
